FAERS Safety Report 11252909 (Version 1)
Quarter: 2015Q3

REPORT INFORMATION
  Report Type: Report from Study
  Country: BR (occurrence: BR)
  Receive Date: 20150708
  Receipt Date: 20150708
  Transmission Date: 20151125
  Serious: Yes (Life-Threatening, Other)
  Sender: FDA-Public Use
  Company Number: PHHY2014BR011453

PATIENT
  Age: 59 Year
  Sex: Female
  Weight: 80 kg

DRUGS (4)
  1. XOLAIR [Suspect]
     Active Substance: OMALIZUMAB
     Indication: HYPERSENSITIVITY
     Dosage: 2 AMPOULES, A MONTH (1 AMPOULE AT RIGHT ARM AND OTHER ON LEFT ARM), 4 MONTHS BEFORE LAST DOSE APPROX
     Route: 065
     Dates: end: 201211
  2. FORASEQ [Suspect]
     Active Substance: BUDESONIDE\FORMOTEROL FUMARATE
     Indication: PRODUCT USED FOR UNKNOWN INDICATION
     Dosage: UNK
     Route: 065
  3. CALCIUM [Concomitant]
     Active Substance: CALCIUM
     Indication: PRODUCT USED FOR UNKNOWN INDICATION
     Dosage: UNK
     Route: 065
  4. METICORTEN [Suspect]
     Active Substance: PREDNISONE
     Indication: PRODUCT USED FOR UNKNOWN INDICATION
     Dosage: 2 DF, UNK
     Route: 065

REACTIONS (15)
  - Immunodeficiency [Unknown]
  - Obstructive airways disorder [Recovering/Resolving]
  - Food allergy [Unknown]
  - Asthma [Recovering/Resolving]
  - Hiatus hernia [Recovering/Resolving]
  - Weight increased [Recovering/Resolving]
  - Dyspnoea [Unknown]
  - Pain in extremity [Unknown]
  - Somnolence [Unknown]
  - Apparent death [Recovering/Resolving]
  - Sleep apnoea syndrome [Recovering/Resolving]
  - Hypoxia [Recovering/Resolving]
  - Fatigue [Recovering/Resolving]
  - Malaise [Unknown]
  - Respiratory arrest [Unknown]

NARRATIVE: CASE EVENT DATE: 20121125
